FAERS Safety Report 25758744 (Version 1)
Quarter: 2025Q3

REPORT INFORMATION
  Report Type: Spontaneous
  Country: US (occurrence: US)
  Receive Date: 20250904
  Receipt Date: 20250904
  Transmission Date: 20251020
  Serious: Yes (Hospitalization)
  Sender: SANOFI AVENTIS
  Company Number: US-SA-2025SA261436

PATIENT
  Age: 43 Year
  Sex: Female

DRUGS (23)
  1. REZUROCK [Suspect]
     Active Substance: BELUMOSUDIL
     Indication: Chronic graft versus host disease
     Dosage: 200 MG, BID
     Route: 048
  2. ACYCLOVIR [Concomitant]
     Active Substance: ACYCLOVIR
  3. AMITRIPTYLINE [Concomitant]
     Active Substance: AMITRIPTYLINE
  4. AMLODIPINE [Concomitant]
     Active Substance: AMLODIPINE BESYLATE
  5. ATORVASTATIN [Concomitant]
     Active Substance: ATORVASTATIN
  6. BUDESONIDE [Concomitant]
     Active Substance: BUDESONIDE
  7. CARVEDILOL [Concomitant]
     Active Substance: CARVEDILOL
  8. CRESEMBA [Concomitant]
     Active Substance: ISAVUCONAZONIUM SULFATE
  9. VITAMINS NOS [Concomitant]
     Active Substance: VITAMINS
  10. DICYCLOMINE [Concomitant]
     Active Substance: DICYCLOMINE HYDROCHLORIDE
  11. ELIQUIS [Concomitant]
     Active Substance: APIXABAN
  12. GABAPENTIN [Concomitant]
     Active Substance: GABAPENTIN
  13. NYSTATIN [Concomitant]
     Active Substance: NYSTATIN
  14. OLANZAPINE [Concomitant]
     Active Substance: OLANZAPINE
  15. OXYCODONE [Concomitant]
     Active Substance: OXYCODONE
  16. PANTOPRAZOLE [Concomitant]
     Active Substance: PANTOPRAZOLE
  17. PENICILLIN V POTASSIUM [PHENOXYMETHYLPENICILLIN] [Concomitant]
  18. PREDNISONE [Concomitant]
     Active Substance: PREDNISONE
  19. SERTRALINE [Concomitant]
     Active Substance: SERTRALINE HYDROCHLORIDE
  20. SULFAMETHOXAZOLE\TRIMETHOPRIM [Concomitant]
     Active Substance: SULFAMETHOXAZOLE\TRIMETHOPRIM
  21. TRAMADOL [Concomitant]
     Active Substance: TRAMADOL
  22. URSODIOL [Concomitant]
     Active Substance: URSODIOL
  23. VALACYCLOVIR [Concomitant]
     Active Substance: VALACYCLOVIR HYDROCHLORIDE

REACTIONS (1)
  - Dyspnoea [Unknown]
